FAERS Safety Report 5096305-4 (Version None)
Quarter: 2006Q3

REPORT INFORMATION
  Report Type: 
  Country: None (occurrence: None)
  Receive Date: 20060830
  Receipt Date: 20060818
  Transmission Date: 20061208
  Serious: Yes (Death, Hospitalization)
  Sender: FDA-Public Use
  Company Number: TR200608001458

PATIENT
  Age: 59 Year
  Sex: Male
  Weight: 90 kg

DRUGS (7)
  1. ZYPREXA [Suspect]
     Indication: SCHIZOAFFECTIVE DISORDER
     Dosage: 10 MG, DAILY (1D), ORAL
     Route: 048
     Dates: start: 20040701
  2. IXEL (MILNACIPRAN) [Concomitant]
  3. DEPAKIN (VALPROATE SODIUM) [Concomitant]
  4. FORADIL [Concomitant]
  5. SYMBICORT /CAN/ (BUDESONIDE, FORMOTEROL FUMARATE) [Concomitant]
  6. THEOPHYLLINE [Concomitant]
  7. CORASPIN (ACETYLSALICYLIC ACID) [Concomitant]

REACTIONS (8)
  - ABNORMAL BEHAVIOUR [None]
  - ACCIDENTAL OVERDOSE [None]
  - CHRONIC OBSTRUCTIVE PULMONARY DISEASE [None]
  - DISORIENTATION [None]
  - INCOHERENT [None]
  - MEDICATION ERROR [None]
  - OEDEMA PERIPHERAL [None]
  - SPEECH DISORDER [None]
